FAERS Safety Report 9031966 (Version 1)
Quarter: 2013Q1

REPORT INFORMATION
  Report Type: Spontaneous
  Country: FR (occurrence: FR)
  Receive Date: 20130125
  Receipt Date: 20130125
  Transmission Date: 20140127
  Serious: Yes (Other)
  Sender: FDA-Public Use
  Company Number: FR-009507513-1301FRA009336

PATIENT
  Age: 35 Year
  Sex: Male

DRUGS (5)
  1. RIBAVIRIN [Suspect]
     Indication: HEPATITIS C
     Dosage: 1200 MG, QD
     Dates: start: 20100408, end: 201004
  2. PEGINTERFERON ALFA-2A [Suspect]
     Indication: HEPATITIS C
     Dosage: 180 MICROGRAM, QW
     Dates: start: 20100408, end: 201004
  3. ATAZANAVIR [Concomitant]
     Indication: HIV INFECTION
     Dosage: UNK
     Dates: start: 200911
  4. TENOFOVIR [Concomitant]
     Indication: HIV INFECTION
     Dosage: UNK
     Dates: start: 200911
  5. EMTRICITABINE [Concomitant]
     Indication: HIV INFECTION
     Dosage: UNK
     Dates: start: 200911

REACTIONS (1)
  - Ophthalmoplegia [Recovered/Resolved]
